FAERS Safety Report 4743074-0 (Version None)
Quarter: 2005Q3

REPORT INFORMATION
  Report Type: 
  Country: None (occurrence: None)
  Receive Date: 20050811
  Receipt Date: 20050608
  Transmission Date: 20060218
  Serious: Yes (Disabling, Other)
  Sender: FDA-Public Use
  Company Number: GB-MERCK-0506GBR00083

PATIENT

DRUGS (5)
  1. FOSAMAX [Suspect]
     Indication: OSTEOPOROSIS
     Route: 048
     Dates: start: 20020101
  2. FLURBIPROFEN [Concomitant]
     Indication: RHEUMATOID ARTHRITIS
     Route: 065
  3. CALCIUM (UNSPECIFIED) AND VITAMIN D (UNSPECIFIED) [Concomitant]
     Route: 065
  4. BECLOMETHASONE DIPROPIONATE [Concomitant]
     Route: 065
  5. LANSOPRAZOLE [Concomitant]
     Route: 065

REACTIONS (3)
  - APHONIA [None]
  - LARYNGEAL ERYTHEMA [None]
  - LARYNGEAL OEDEMA [None]
